FAERS Safety Report 9961863 (Version 1)
Quarter: 2014Q1

REPORT INFORMATION
  Report Type: Report from Study
  Country: US (occurrence: US)
  Receive Date: 20140305
  Receipt Date: 20140305
  Transmission Date: 20141002
  Serious: No
  Sender: FDA-Public Use
  Company Number: US-ABBVIE-13P-163-1111532-00

PATIENT
  Age: 65 Year
  Sex: Male

DRUGS (12)
  1. HUMIRA [Suspect]
     Indication: COLITIS ULCERATIVE
     Dates: start: 200810
  2. HUMIRA [Suspect]
  3. LAXATIVES [Suspect]
     Indication: PRODUCT USED FOR UNKNOWN INDICATION
     Dates: start: 201212
  4. ZOLPIDEM [Concomitant]
     Indication: INSOMNIA
     Dosage: 1 A DAY
  5. DICYCLOMINE [Concomitant]
     Indication: PRODUCT USED FOR UNKNOWN INDICATION
     Dosage: 4 A DAY
  6. ALFUZOSIN [Concomitant]
     Indication: PROSTATIC DISORDER
  7. OXYCODONE W/APAP [Concomitant]
     Indication: PAIN
     Dosage: 7.5/500MG; 2 A DAY
  8. VITAMIN E [Concomitant]
     Indication: PRODUCT USED FOR UNKNOWN INDICATION
  9. VITAMIN D [Concomitant]
     Indication: PRODUCT USED FOR UNKNOWN INDICATION
  10. VITAMIN C [Concomitant]
     Indication: PRODUCT USED FOR UNKNOWN INDICATION
  11. FOLIC ACID [Concomitant]
     Indication: VITAMIN SUPPLEMENTATION
  12. OVER THE COUNTER MEDICATION [Concomitant]
     Indication: HYPERSENSITIVITY

REACTIONS (1)
  - Rectal haemorrhage [Recovering/Resolving]
